FAERS Safety Report 14983529 (Version 1)
Quarter: 2018Q2

REPORT INFORMATION
  Report Type: Spontaneous
  Country: DE (occurrence: DE)
  Receive Date: 20180607
  Receipt Date: 20180607
  Transmission Date: 20180711
  Serious: Yes (Hospitalization)
  Sender: FDA-Public Use
  Company Number: DE-TEVA-2018-DE-901073

PATIENT
  Sex: Female

DRUGS (2)
  1. WICK NASENSPRAY (CAMPHOR/M/CINEOLE/MENTHOL/OXYMETAZOLINE HYDROCHLORIDE) [Concomitant]
     Route: 045
  2. BISOPROLOL ABZ 5 MG TABLETTEN [Suspect]
     Active Substance: BISOPROLOL
     Indication: HYPERTENSION
     Route: 048

REACTIONS (3)
  - Epistaxis [Not Recovered/Not Resolved]
  - Tremor [Unknown]
  - Mouth haemorrhage [Unknown]

NARRATIVE: CASE EVENT DATE: 20180527
